FAERS Safety Report 19083888 (Version 1)
Quarter: 2021Q2

REPORT INFORMATION
  Report Type: Spontaneous
  Country: GB (occurrence: GB)
  Receive Date: 20210401
  Receipt Date: 20210401
  Transmission Date: 20210717
  Serious: Yes (Hospitalization, Other)
  Sender: FDA-Public Use
  Company Number: GB-INGENUS PHARMACEUTICALS, LLC-2021INF000026

PATIENT
  Age: 40 Year
  Sex: Male

DRUGS (2)
  1. OXALIPLATIN. [Suspect]
     Active Substance: OXALIPLATIN
     Indication: ADENOCARCINOMA OF COLON
     Dosage: 250 MILLIGRAM
     Route: 042
  2. CAPECITABINE. [Suspect]
     Active Substance: CAPECITABINE
     Indication: ADENOCARCINOMA OF COLON
     Dosage: UNK
     Route: 048

REACTIONS (4)
  - Ejection fraction decreased [Recovered/Resolved]
  - Pulmonary embolism [Recovered/Resolved]
  - Toxic leukoencephalopathy [Recovered/Resolved]
  - Ventricular hypokinesia [Recovered/Resolved]
